FAERS Safety Report 4426422-0 (Version None)
Quarter: 2004Q3

REPORT INFORMATION
  Report Type: 
  Country: None (occurrence: None)
  Receive Date: 20040811
  Receipt Date: 20040722
  Transmission Date: 20050211
  Serious: Yes (Hospitalization)
  Sender: FDA-Public Use
  Company Number: DE_040713965

PATIENT
  Age: 38 Year
  Sex: Male

DRUGS (3)
  1. ZYPREXA [Suspect]
     Indication: PSYCHOTIC DISORDER
     Dosage: 7.5 MG DAY
     Dates: start: 19980101
  2. LANTUS [Concomitant]
  3. REGULAR INSULIN [Concomitant]

REACTIONS (10)
  - BILE DUCT STENOSIS [None]
  - DIABETES MELLITUS [None]
  - GASTROOESOPHAGEAL REFLUX DISEASE [None]
  - HELICOBACTER GASTRITIS [None]
  - HEPATIC CYST [None]
  - HYPOINSULINAEMIA POSTOPERATIVE [None]
  - JAUNDICE [None]
  - PANCREATIC INSUFFICIENCY [None]
  - PANCREATICODUODENECTOMY [None]
  - TRANSAMINASES INCREASED [None]
